FAERS Safety Report 10981342 (Version 1)
Quarter: 2015Q1

REPORT INFORMATION
  Report Type: Spontaneous
  Country: US (occurrence: None)
  Receive Date: 20150227
  Receipt Date: 20150227
  Transmission Date: 20150721
  Serious: Yes (Other)
  Sender: FDA-Public Use
  Company Number: LMI-2014-00388

PATIENT
  Age: 58 Year
  Sex: Female
  Weight: 73.9 kg

DRUGS (1)
  1. DEFINITY [Suspect]
     Active Substance: PERFLUTREN
     Indication: STRESS ECHOCARDIOGRAM
     Dosage: 4 ML (1.7 ML DEFINITELY DILUTED IN 8.3 ML NORMAL SALINE)
     Route: 040
     Dates: start: 20140821, end: 20140821

REACTIONS (4)
  - Muscle spasms [None]
  - Dizziness [None]
  - Presyncope [None]
  - Blood pressure decreased [None]

NARRATIVE: CASE EVENT DATE: 20140821
